FAERS Safety Report 8001863-3 (Version None)
Quarter: 2011Q4

REPORT INFORMATION
  Report Type: 
  Country: None (occurrence: None)
  Receive Date: 20111220
  Receipt Date: 20111207
  Transmission Date: 20120403
  Serious: Yes (Death)
  Sender: FDA-Public Use
  Company Number: UTC-013192

PATIENT
  Age: 64 Year
  Sex: Male

DRUGS (2)
  1. REVATIO [Concomitant]
  2. TYVASO (6 MICROGRAM, AEROSOL FOR INHALATION) (TREPROSTINIL SODIUIM) [Suspect]
     Indication: COR PULMONALE CHRONIC
     Dosage: 216 MCG (54 MCG, 4 IN 1 D), INHALATION
     Route: 055
     Dates: start: 20100504

REACTIONS (1)
  - DEATH [None]
